FAERS Safety Report 16710145 (Version 1)
Quarter: 2019Q3

REPORT INFORMATION
  Report Type: Spontaneous
  Country: US (occurrence: US)
  Receive Date: 20190816
  Receipt Date: 20190816
  Transmission Date: 20191004
  Serious: No
  Sender: FDA-Public Use
  Company Number: US-ELI_LILLY_AND_COMPANY-US201908006599

PATIENT
  Sex: Male

DRUGS (3)
  1. TRULICITY [Suspect]
     Active Substance: DULAGLUTIDE
     Indication: DIABETES MELLITUS
     Dosage: 1.5 MG, UNKNOWN
     Route: 058
  2. TRULICITY [Suspect]
     Active Substance: DULAGLUTIDE
     Dosage: 1.5 MG, UNKNOWN
     Route: 058
  3. METFORMIN [Concomitant]
     Active Substance: METFORMIN HYDROCHLORIDE
     Indication: DIABETES MELLITUS
     Dosage: 1000 MG, DAILY

REACTIONS (8)
  - Pain [Not Recovered/Not Resolved]
  - Flatulence [Not Recovered/Not Resolved]
  - Glycosylated haemoglobin increased [Not Recovered/Not Resolved]
  - Malaise [Not Recovered/Not Resolved]
  - Nausea [Not Recovered/Not Resolved]
  - Eructation [Not Recovered/Not Resolved]
  - Blood glucose decreased [Not Recovered/Not Resolved]
  - Diarrhoea [Not Recovered/Not Resolved]
